FAERS Safety Report 6554557-5 (Version None)
Quarter: 2010Q1

REPORT INFORMATION
  Report Type: 
  Country: None (occurrence: None)
  Receive Date: 20100127
  Receipt Date: 20100120
  Transmission Date: 20100710
  Serious: Yes (Other)
  Sender: FDA-Public Use
  Company Number: PHHO2010FR01342

PATIENT
  Sex: Male
  Weight: 76 kg

DRUGS (6)
  1. STI571/CGP57148B T35717+TAB [Suspect]
     Indication: ACUTE LYMPHOCYTIC LEUKAEMIA
     Dosage: 800 MG, UNK
     Route: 048
     Dates: start: 20100112
  2. VINCRISTINE [Suspect]
     Indication: ACUTE LYMPHOCYTIC LEUKAEMIA
     Dosage: 2 MG, UNK
     Route: 042
     Dates: start: 20100112, end: 20100112
  3. DEXAMETHASONE [Concomitant]
     Dosage: UNK
     Dates: start: 20100112, end: 20100113
  4. METHOTREXATE [Concomitant]
  5. DEPO-MEDROL [Concomitant]
  6. CYTARABINE [Concomitant]

REACTIONS (12)
  - CONFUSIONAL STATE [None]
  - CSF PROTEIN INCREASED [None]
  - FACIAL PALSY [None]
  - GENERAL PHYSICAL HEALTH DETERIORATION [None]
  - LUNG DISORDER [None]
  - MENINGITIS BACTERIAL [None]
  - NEUROLOGICAL DECOMPENSATION [None]
  - PLEURAL EFFUSION [None]
  - PSEUDOMONAS INFECTION [None]
  - PYREXIA [None]
  - SEPSIS [None]
  - STAPHYLOCOCCAL INFECTION [None]
